FAERS Safety Report 26001111 (Version 1)
Quarter: 2025Q4

REPORT INFORMATION
  Report Type: Spontaneous
  Country: US (occurrence: None)
  Receive Date: 20251105
  Receipt Date: 20251105
  Transmission Date: 20260118
  Serious: Yes (Other)
  Sender: UCB
  Company Number: US-UCBSA-2025066068

PATIENT
  Age: 31 Year
  Weight: 136.05 kg

DRUGS (1)
  1. KEPPRA [Suspect]
     Active Substance: LEVETIRACETAM
     Indication: Seizure
     Dosage: 500 MILLIGRAM, 2X/DAY (BID)

REACTIONS (4)
  - Choking [Recovering/Resolving]
  - Trismus [Recovering/Resolving]
  - Oral disorder [Recovering/Resolving]
  - Tremor [Recovering/Resolving]
